FAERS Safety Report 5150551-X (Version None)
Quarter: 2006Q4

REPORT INFORMATION
  Report Type: 
  Country: None (occurrence: None)
  Receive Date: 20061109
  Receipt Date: 20061109
  Transmission Date: 20070319
  Serious: Yes (Hospitalization)
  Sender: FDA-Public Use
  Company Number: None

PATIENT
  Age: 65 Year
  Sex: Female
  Weight: 74.3899 kg

DRUGS (2)
  1. GEMCITABINE [Suspect]
     Indication: PANCREATIC CARCINOMA METASTATIC
     Dosage: 750 MG/M2 DAYS 1 + 8/21 DAYS IV
     Route: 042
     Dates: start: 20060628, end: 20061019
  2. XELODA [Suspect]
     Indication: PANCREATIC CARCINOMA METASTATIC
     Dosage: 850 MG/M2 DAYS 1-14 / 21 DAYS PO
     Route: 048
     Dates: start: 20060628, end: 20061026

REACTIONS (1)
  - GALLBLADDER PERFORATION [None]
